FAERS Safety Report 16105156 (Version 1)
Quarter: 2019Q1

REPORT INFORMATION
  Report Type: Spontaneous
  Country: US (occurrence: US)
  Receive Date: 20190322
  Receipt Date: 20190322
  Transmission Date: 20190418
  Serious: Yes (Other)
  Sender: FDA-Public Use
  Company Number: PHHY2019US060927

PATIENT
  Age: 54 Year
  Sex: Female

DRUGS (3)
  1. DEXAMETHASONE. [Suspect]
     Active Substance: DEXAMETHASONE
     Indication: HAEMATOPOIETIC STEM CELL MOBILISATION
     Route: 065
  2. BORTEZOMIB. [Suspect]
     Active Substance: BORTEZOMIB
     Indication: HAEMATOPOIETIC STEM CELL MOBILISATION
     Route: 065
  3. MELPHALAN. [Suspect]
     Active Substance: MELPHALAN
     Indication: HAEMATOPOIETIC STEM CELL MOBILISATION
     Route: 065

REACTIONS (2)
  - Encephalopathy [Recovered/Resolved]
  - Blindness [Unknown]
